FAERS Safety Report 6518845-0 (Version None)
Quarter: 2009Q4

REPORT INFORMATION
  Report Type: 
  Country: None (occurrence: None)
  Receive Date: 20091228
  Receipt Date: 20091125
  Transmission Date: 20100525
  Serious: No
  Sender: FDA-Public Use
  Company Number: US-BAYER-200942203NA

PATIENT
  Age: 30 Year
  Sex: Female
  Weight: 111 kg

DRUGS (1)
  1. ULTRAVIST (PHARMACY BULK) [Suspect]
     Indication: COMPUTERISED TOMOGRAM
     Dosage: TOTAL DAILY DOSE: 96 ML  UNIT DOSE: 500 ML
     Route: 042
     Dates: start: 20091125, end: 20091125

REACTIONS (1)
  - URTICARIA [None]
